FAERS Safety Report 6284921-3 (Version None)
Quarter: 2009Q3

REPORT INFORMATION
  Report Type: 
  Country: None (occurrence: None)
  Receive Date: 20090723
  Receipt Date: 20090707
  Transmission Date: 20100115
  Serious: Yes (Other)
  Sender: FDA-Public Use
  Company Number: ACO_00558_2009

PATIENT
  Age: 18 Month
  Sex: Male

DRUGS (5)
  1. TIZANIDINE HYDROCHLORIDE [Suspect]
     Indication: EPILEPSY
     Dosage: (DF ORAL)
     Route: 048
  2. TIZANIDINE HYDROCHLORIDE [Suspect]
     Indication: HYPERTONIA
     Dosage: (DF ORAL)
     Route: 048
  3. VALPROATE SODIUM [Concomitant]
  4. ZONISAMIDE [Concomitant]
  5. POTASSIUM BROMIDE [Concomitant]

REACTIONS (9)
  - AGITATION [None]
  - CEREBRAL PALSY [None]
  - HYPERCREATINAEMIA [None]
  - HYPERHIDROSIS [None]
  - MUSCLE RIGIDITY [None]
  - MYOGLOBINURIA [None]
  - NEUROLEPTIC MALIGNANT SYNDROME [None]
  - TACHYCARDIA [None]
  - TREMOR [None]
